FAERS Safety Report 5935988-0 (Version None)
Quarter: 2008Q4

REPORT INFORMATION
  Report Type: 
  Country: None (occurrence: None)
  Receive Date: 20081030
  Receipt Date: 20081023
  Transmission Date: 20090506
  Serious: Yes (Other)
  Sender: FDA-Public Use
  Company Number: JP-MERCK-0810USA04666

PATIENT

DRUGS (3)
  1. PEPCID RPD [Suspect]
     Indication: GASTRITIS
     Route: 048
     Dates: start: 20080701, end: 20081021
  2. NORVASC [Concomitant]
     Route: 048
  3. ARICEPT [Concomitant]
     Route: 048

REACTIONS (1)
  - DEMENTIA [None]
